FAERS Safety Report 26196550 (Version 1)
Quarter: 2025Q4

REPORT INFORMATION
  Report Type: Spontaneous
  Country: US (occurrence: US)
  Receive Date: 20251224
  Receipt Date: 20251224
  Transmission Date: 20260118
  Serious: No
  Sender: ELEVATE ORAL CARE
  Company Number: US-Elevate Oral Care-2190736

PATIENT
  Age: 59 Year
  Sex: Female

DRUGS (1)
  1. ALLDAY 5000 [Suspect]
     Active Substance: SODIUM FLUORIDE

REACTIONS (1)
  - Mouth ulceration [Recovered/Resolved]

NARRATIVE: CASE EVENT DATE: 20250918
